FAERS Safety Report 16271684 (Version 1)
Quarter: 2019Q2

REPORT INFORMATION
  Report Type: Spontaneous
  Country: DE (occurrence: DE)
  Receive Date: 20190503
  Receipt Date: 20190503
  Transmission Date: 20190711
  Serious: Yes (Other)
  Sender: FDA-Public Use
  Company Number: DE-TEVA-2019-DE-1044297

PATIENT
  Age: 49 Year
  Sex: Female
  Weight: 69 kg

DRUGS (1)
  1. CIPROFLOXACIN. [Suspect]
     Active Substance: CIPROFLOXACIN
     Indication: SERRATIA SEPSIS
     Dosage: CIPROFLOXACIN 500, 5X 1 WEEK
     Route: 048
     Dates: start: 2014, end: 2015

REACTIONS (14)
  - Arthralgia [Recovered/Resolved with Sequelae]
  - Ureteric injury [Unknown]
  - Anxiety [Recovered/Resolved with Sequelae]
  - Somnolence [Recovered/Resolved with Sequelae]
  - Chronic kidney disease [Unknown]
  - Neurodegenerative disorder [Recovered/Resolved with Sequelae]
  - Pyrexia [Recovered/Resolved with Sequelae]
  - Myalgia [Recovered/Resolved with Sequelae]
  - Tendon pain [Recovered/Resolved with Sequelae]
  - Pyelonephritis chronic [Unknown]
  - Renal impairment [Recovered/Resolved with Sequelae]
  - Fatigue [Recovered/Resolved with Sequelae]
  - Disturbance in attention [Recovered/Resolved with Sequelae]
  - Nephrostomy [Unknown]

NARRATIVE: CASE EVENT DATE: 2014
